FAERS Safety Report 6442447-8 (Version None)
Quarter: 2009Q4

REPORT INFORMATION
  Report Type: 
  Country: None (occurrence: None)
  Receive Date: 20091112
  Receipt Date: 20091102
  Transmission Date: 20100525
  Serious: Yes (Other)
  Sender: FDA-Public Use
  Company Number: ADR46212009

PATIENT
  Sex: Male

DRUGS (2)
  1. SIMVASTATIN [Suspect]
     Indication: HYPERCHOLESTEROLAEMIA
     Dosage: 20 MG
     Route: 048
  2. CITALOPRAM HYDROBROMIDE [Concomitant]

REACTIONS (3)
  - ANGIOEDEMA [None]
  - COORDINATION ABNORMAL [None]
  - HEADACHE [None]
